FAERS Safety Report 23336461 (Version 1)
Quarter: 2023Q4

REPORT INFORMATION
  Report Type: Spontaneous
  Country: CN (occurrence: CN)
  Receive Date: 20231225
  Receipt Date: 20231225
  Transmission Date: 20240109
  Serious: Yes (Other)
  Sender: FDA-Public Use
  Company Number: CN-ABBVIE-5552529

PATIENT
  Age: 69 Year
  Sex: Male

DRUGS (5)
  1. VENETOCLAX [Suspect]
     Active Substance: VENETOCLAX
     Indication: Chemotherapy
     Dosage: 100 MILLIGRAM, LAST ADMIN DATE: 13 OCT 2023, DAY 1
     Route: 048
     Dates: start: 20231013
  2. VENETOCLAX [Suspect]
     Active Substance: VENETOCLAX
     Indication: Chemotherapy
     Dosage: 400 MILLIGRAM,
     Route: 048
     Dates: start: 20231015, end: 20231019
  3. VENETOCLAX [Suspect]
     Active Substance: VENETOCLAX
     Indication: Chemotherapy
     Dosage: 200 MILLIGRAM, LAST ADMIN DATE: 14 OCT 2023, DAY 2
     Route: 048
     Dates: start: 20231014
  4. STERILE WATER FOR INJECTION [Concomitant]
     Active Substance: WATER
     Indication: Myelodysplastic syndrome
     Dosage: 6 MILLILITER
     Dates: start: 20231013, end: 20231019
  5. AZACITIDINE [Suspect]
     Active Substance: AZACITIDINE
     Indication: Myelodysplastic syndrome
     Dosage: 120 MILLIGRAM, FOR INJECTION, DAY 1- 7
     Route: 065
     Dates: start: 20231013, end: 20231019

REACTIONS (2)
  - Myelosuppression [Not Recovered/Not Resolved]
  - Off label use [Unknown]

NARRATIVE: CASE EVENT DATE: 20231013
